FAERS Safety Report 19824206 (Version 3)
Quarter: 2021Q4

REPORT INFORMATION
  Report Type: Spontaneous
  Country: MX (occurrence: MX)
  Receive Date: 20210913
  Receipt Date: 20211001
  Transmission Date: 20220304
  Serious: No
  Sender: FDA-Public Use
  Company Number: MX-BAYER-2021-209710

PATIENT
  Age: 53 Year
  Sex: Female

DRUGS (2)
  1. LAROTRECTINIB [Suspect]
     Active Substance: LAROTRECTINIB
     Indication: Astrocytoma, low grade
     Dosage: UNK
     Dates: start: 20210809, end: 20210828
  2. LAROTRECTINIB [Suspect]
     Active Substance: LAROTRECTINIB
     Indication: Glioblastoma multiforme

REACTIONS (2)
  - Neurological decompensation [Recovered/Resolved]
  - Constipation [Recovered/Resolved]
